FAERS Safety Report 14234573 (Version 4)
Quarter: 2017Q4

REPORT INFORMATION
  Report Type: Report from Study
  Country: None (occurrence: US)
  Receive Date: 20171129
  Receipt Date: 20171208
  Transmission Date: 20180321
  Serious: Yes (Other)
  Sender: FDA-Public Use
  Company Number: US-ABBVIE-17K-163-2171682-00

PATIENT
  Age: 84 Year
  Sex: Female
  Weight: 72.64 kg

DRUGS (3)
  1. SIMVASTATIN. [Concomitant]
     Active Substance: SIMVASTATIN
     Indication: BLOOD CHOLESTEROL INCREASED
  2. HUMIRA [Suspect]
     Active Substance: ADALIMUMAB
     Indication: PSORIASIS
     Route: 058
  3. ASPIRIN. [Concomitant]
     Active Substance: ASPIRIN
     Indication: CARDIAC MURMUR
     Dosage: LOW DOSE

REACTIONS (5)
  - Transfusion [Unknown]
  - Syncope [Unknown]
  - Urinary incontinence [Not Recovered/Not Resolved]
  - Cardiac murmur [Not Recovered/Not Resolved]
  - Pelvic prolapse [Not Recovered/Not Resolved]

NARRATIVE: CASE EVENT DATE: 2015
